FAERS Safety Report 13368565 (Version 1)
Quarter: 2017Q1

REPORT INFORMATION
  Report Type: Spontaneous
  Country: US (occurrence: US)
  Receive Date: 20170324
  Receipt Date: 20170324
  Transmission Date: 20170429
  Serious: No
  Sender: FDA-Public Use
  Company Number: US-PFIZER INC-2017125875

PATIENT
  Age: 85 Year

DRUGS (9)
  1. LEVOTHYROXINE SODIUM. [Suspect]
     Active Substance: LEVOTHYROXINE SODIUM
     Dosage: UNK
  2. ASPIRIN. [Suspect]
     Active Substance: ASPIRIN
  3. ZYRTEC [Suspect]
     Active Substance: CETIRIZINE HYDROCHLORIDE
  4. KLONOPIN [Suspect]
     Active Substance: CLONAZEPAM
  5. LASIX [Suspect]
     Active Substance: FUROSEMIDE
  6. FENOFIBRATE. [Suspect]
     Active Substance: FENOFIBRATE
  7. CODEINE [Suspect]
     Active Substance: CODEINE
  8. LOSARTAN. [Suspect]
     Active Substance: LOSARTAN
  9. OSCAL D [Suspect]
     Active Substance: CALCIUM CARBONATE\CHOLECALCIFEROL

REACTIONS (1)
  - Drug hypersensitivity [Unknown]
